FAERS Safety Report 25777238 (Version 1)
Quarter: 2025Q3

REPORT INFORMATION
  Report Type: Spontaneous
  Country: IN (occurrence: IN)
  Receive Date: 20250909
  Receipt Date: 20250909
  Transmission Date: 20251021
  Serious: Yes (Other)
  Sender: ADAPTIS PHARMA INDIA
  Company Number: IN-Adaptis Pharma Private Limited-2184122

PATIENT
  Age: 38 Year
  Sex: Male

DRUGS (1)
  1. LEVETIRACETAM [Suspect]
     Active Substance: LEVETIRACETAM
     Indication: Seizure

REACTIONS (1)
  - Psychotic disorder [Recovered/Resolved]
